FAERS Safety Report 14458772 (Version 2)
Quarter: 2018Q1

REPORT INFORMATION
  Report Type: Report from Study
  Country: US (occurrence: US)
  Receive Date: 20180130
  Receipt Date: 20180213
  Transmission Date: 20180509
  Serious: Yes (Hospitalization, Other)
  Sender: FDA-Public Use
  Company Number: US-GILEAD-2018-0317505

PATIENT
  Age: 77 Year
  Sex: Female
  Weight: 71 kg

DRUGS (2)
  1. AMBRISENTAN [Suspect]
     Active Substance: AMBRISENTAN
     Indication: PRODUCT USED FOR UNKNOWN INDICATION
     Dosage: 5 MG, QD
     Route: 065
     Dates: start: 20171207
  2. ADCIRCA [Concomitant]
     Active Substance: TADALAFIL

REACTIONS (11)
  - Lethargy [Recovered/Resolved]
  - Fall [Unknown]
  - Malaise [Not Recovered/Not Resolved]
  - Depressed level of consciousness [Recovered/Resolved]
  - Dehydration [Unknown]
  - Syncope [Unknown]
  - Loss of consciousness [Unknown]
  - Confusional state [Recovered/Resolved]
  - Chronic kidney disease [Recovered/Resolved]
  - Head injury [Unknown]
  - Encephalopathy [Recovered/Resolved]

NARRATIVE: CASE EVENT DATE: 20180101
